FAERS Safety Report 22760152 (Version 3)
Quarter: 2025Q4

REPORT INFORMATION
  Report Type: Spontaneous
  Country: EU (occurrence: EU)
  Receive Date: 20230728
  Receipt Date: 20251119
  Transmission Date: 20260118
  Serious: Yes (Hospitalization, Other)
  Sender: AUROBINDO
  Company Number: EU-Orion Corporation ORION PHARMA-TELM2023-0003

PATIENT
  Age: 46 Year
  Sex: Female

DRUGS (17)
  1. AMLODIPINE [Suspect]
     Active Substance: AMLODIPINE BESYLATE
     Indication: Hypertension
     Dosage: 10 MILLIGRAM (1 ? 10 MG (DOSE DECREASED))
     Route: 065
  2. AMLODIPINE [Suspect]
     Active Substance: AMLODIPINE BESYLATE
     Dosage: 10 MILLIGRAM (2 ? 10 MG)
     Route: 065
  3. BISOPROLOL [Suspect]
     Active Substance: BISOPROLOL
     Indication: Hypertension
     Dosage: 5 MILLIGRAM (1 ? 5 MG)
     Route: 065
  4. DOXAZOSIN [Suspect]
     Active Substance: DOXAZOSIN MESYLATE
     Indication: Hypertension
     Dosage: 4 MILLIGRAM (1 ? 4 MG)
     Route: 065
  5. DOXAZOSIN [Suspect]
     Active Substance: DOXAZOSIN MESYLATE
     Dosage: 8 MILLIGRAM (1 ? 8 MG)
     Route: 065
  6. LISINOPRIL [Suspect]
     Active Substance: LISINOPRIL
     Indication: Hypertension
     Dosage: UNK
     Route: 065
  7. LISINOPRIL [Suspect]
     Active Substance: LISINOPRIL
     Dosage: 40 MILLIGRAM (2 ? 40 MG)
     Route: 065
  8. TELMISARTAN [Suspect]
     Active Substance: TELMISARTAN
     Indication: Hypertension
     Dosage: 40 MILLIGRAM (2 ? 40 MG)
     Route: 065
  9. TELMISARTAN [Suspect]
     Active Substance: TELMISARTAN
     Indication: Blood pressure increased
  10. CLONIDINE [Suspect]
     Active Substance: CLONIDINE
     Indication: Hypertension
     Dosage: 225 MICROGRAM (3 ? 225 MCG)
     Route: 065
  11. INDAPAMIDE [Suspect]
     Active Substance: INDAPAMIDE
     Indication: Hypertension
     Dosage: 1.5 MILLIGRAM (1 ? 1.5 MG)
     Route: 065
  12. METHYLDOPA [Suspect]
     Active Substance: METHYLDOPA
     Indication: Hypertension
     Dosage: UNK
     Route: 065
  13. METHYLDOPA [Suspect]
     Active Substance: METHYLDOPA
     Dosage: 250 MILLIGRAM (3 ? 250 MG)
     Route: 065
  14. SPIRONOLACTONE [Suspect]
     Active Substance: SPIRONOLACTONE
     Indication: Hypertension
     Dosage: 25 MILLIGRAM (1 ? 25 MG)
     Route: 065
  15. SPIRONOLACTONE [Suspect]
     Active Substance: SPIRONOLACTONE
     Dosage: 50 MILLIGRAM (1 ? 50 MG)
     Route: 065
  16. TORSEMIDE [Suspect]
     Active Substance: TORSEMIDE
     Indication: Hypertension
     Dosage: 10 MILLIGRAM (1 ? 10 MG)
     Route: 065
  17. TORSEMIDE [Suspect]
     Active Substance: TORSEMIDE
     Dosage: 5 MILLIGRAM (1 ? 5 MG)
     Route: 065

REACTIONS (4)
  - Hypertension [Not Recovered/Not Resolved]
  - Retinopathy hypertensive [Unknown]
  - Headache [Unknown]
  - Drug ineffective [Not Recovered/Not Resolved]
